FAERS Safety Report 17734176 (Version 1)
Quarter: 2020Q2

REPORT INFORMATION
  Report Type: Spontaneous
  Country: CH (occurrence: CH)
  Receive Date: 20200501
  Receipt Date: 20200501
  Transmission Date: 20200714
  Serious: Yes (Death, Other)
  Sender: FDA-Public Use
  Company Number: CH-SA-2020SA109443

PATIENT
  Age: 72 Year
  Sex: Male

DRUGS (17)
  1. PARACETAMOL [Concomitant]
     Active Substance: ACETAMINOPHEN
     Indication: PAIN
     Dosage: 500 MG, QID
  2. PIPERACILLIN AND TAZOBACTAM [Concomitant]
     Active Substance: PIPERACILLIN SODIUM\TAZOBACTAM SODIUM
     Dosage: 13.5 G
     Route: 042
     Dates: start: 20200330, end: 20200403
  3. DOXYCYCLINE. [Suspect]
     Active Substance: DOXYCYCLINE
     Indication: CORONAVIRUS INFECTION
     Dosage: 200 MG
     Route: 048
     Dates: start: 20200322, end: 20200329
  4. PLAQUENIL [Suspect]
     Active Substance: HYDROXYCHLOROQUINE SULFATE
     Indication: PRODUCT USE IN UNAPPROVED INDICATION
  5. PLAQUENIL [Suspect]
     Active Substance: HYDROXYCHLOROQUINE SULFATE
     Indication: CORONAVIRUS INFECTION
     Dosage: 800 MG/DAY FROM 22 TO 23 MAR 2020, 400 MG/DAY FROM 24 TO 26 MAR 2020, 600 MG/DAY FROM 26 TO 30 MAR 2
     Route: 048
     Dates: start: 20200322, end: 20200330
  6. ENOXAPARIN SODIUM. [Suspect]
     Active Substance: ENOXAPARIN SODIUM
     Indication: ANTICOAGULANT THERAPY
     Dosage: 40 MG
     Route: 058
     Dates: start: 20200321, end: 20200330
  7. FENTANYL. [Suspect]
     Active Substance: FENTANYL
     Indication: PAIN
     Dosage: 25 UG/H
     Route: 062
     Dates: start: 20200323, end: 20200403
  8. PARACETAMOL [Concomitant]
     Active Substance: ACETAMINOPHEN
     Dosage: 500 MG
  9. RELAXANE [Concomitant]
     Dosage: UNK UNK, TID
  10. AZITHROMYCIN ANHYDROUS. [Suspect]
     Active Substance: AZITHROMYCIN ANHYDROUS
     Indication: CORONAVIRUS INFECTION
     Dosage: 250 MG
     Route: 048
     Dates: start: 20200328, end: 20200401
  11. AMOXICILLIN TRIHYDRATE/POTASSIUM CLAVULANATE [Suspect]
     Active Substance: AMOXICILLIN\CLAVULANATE POTASSIUM
     Indication: PNEUMONIA
     Dosage: 3.6 G, QD
     Route: 041
     Dates: start: 20200323, end: 20200330
  12. HUMULUS LUPULUS EXTRACT;VALERIANA OFFICINALIS EXTRACT [Concomitant]
  13. METOCLOPRAMIDE. [Concomitant]
     Active Substance: METOCLOPRAMIDE
     Dosage: 10 MG, TID
  14. REDORMIN [REMIFENTANIL HYDROCHLORIDE] [Concomitant]
     Active Substance: REMIFENTANIL HYDROCHLORIDE
     Indication: INSOMNIA
     Dosage: 500 MG, QD
  15. MACROGOL [Concomitant]
     Active Substance: POLYETHYLENE GLYCOLS
     Dosage: UNK UNK, QD
  16. SUPRADYN [MINERALS NOS;VITAMINS NOS] [Concomitant]
     Dosage: UNK UNK, QD
  17. DEXAMETHASONE. [Concomitant]
     Active Substance: DEXAMETHASONE
     Indication: BRAIN OEDEMA
     Dosage: UNK
     Dates: start: 20200321

REACTIONS (4)
  - Off label use [Unknown]
  - Thrombocytopenia [Not Recovered/Not Resolved]
  - Haemolytic anaemia [Not Recovered/Not Resolved]
  - Thrombotic microangiopathy [Not Recovered/Not Resolved]

NARRATIVE: CASE EVENT DATE: 20200327
